FAERS Safety Report 21050132 (Version 1)
Quarter: 2022Q3

REPORT INFORMATION
  Report Type: Spontaneous
  Country: US (occurrence: US)
  Receive Date: 20220706
  Receipt Date: 20220706
  Transmission Date: 20221027
  Serious: No
  Sender: FDA-Public Use
  Company Number: US-JNJFOC-20220661397

PATIENT
  Age: 39 Year
  Sex: Female

DRUGS (1)
  1. SPRAVATO [Suspect]
     Active Substance: ESKETAMINE
     Indication: Product used for unknown indication

REACTIONS (3)
  - Panic attack [Unknown]
  - Paraesthesia [Unknown]
  - Malaise [Unknown]

NARRATIVE: CASE EVENT DATE: 20220617
